FAERS Safety Report 5528930-8 (Version None)
Quarter: 2007Q4

REPORT INFORMATION
  Report Type: 
  Country: None (occurrence: None)
  Receive Date: 20071129
  Receipt Date: 20071115
  Transmission Date: 20080405
  Serious: Yes (Death, Hospitalization)
  Sender: FDA-Public Use
  Company Number: JP-ELI_LILLY_AND_COMPANY-JP200706003374

PATIENT
  Age: 71 Year
  Sex: Female

DRUGS (3)
  1. GEMZAR [Suspect]
     Indication: PANCREATIC CARCINOMA
     Dosage: UNK, OTHER
     Route: 042
     Dates: start: 20070501
  2. MECOBALAMIN [Concomitant]
     Dosage: UNK, UNKNOWN
     Route: 065
  3. NIFELAT [Concomitant]
     Dosage: UNK, UNKNOWN
     Route: 065

REACTIONS (3)
  - ASCITES [None]
  - BLOOD BILIRUBIN INCREASED [None]
  - MYOCARDIAL INFARCTION [None]
